FAERS Safety Report 6095717-X (Version None)
Quarter: 2009Q1

REPORT INFORMATION
  Report Type: 
  Country: None (occurrence: None)
  Receive Date: 20090225
  Receipt Date: 20090225
  Transmission Date: 20090719
  Serious: Yes (Disabling, Other)
  Sender: FDA-Public Use
  Company Number: None

PATIENT
  Age: 51 Year
  Sex: Male
  Weight: 95.2554 kg

DRUGS (1)
  1. PRILOSEC OTC [Suspect]
     Indication: DYSPEPSIA
     Dosage: 14 DAY COURSE 1 PER DAY
     Dates: start: 20081026, end: 20081109

REACTIONS (2)
  - ARTHROPOD-BORNE DISEASE [None]
  - DIARRHOEA [None]
